FAERS Safety Report 9080169 (Version 1)
Quarter: 2013Q1

REPORT INFORMATION
  Report Type: Spontaneous
  Country: US (occurrence: US)
  Receive Date: 20130218
  Receipt Date: 20130218
  Transmission Date: 20140127
  Serious: Yes (Other)
  Sender: FDA-Public Use
  Company Number: GXBR2013US000600

PATIENT
  Age: 54 Year
  Sex: Female

DRUGS (1)
  1. METOPROLOL [Suspect]
     Dosage: 25 MG, UNK

REACTIONS (3)
  - Atrial fibrillation [Unknown]
  - Blood pressure increased [Unknown]
  - Drug ineffective [Unknown]
